FAERS Safety Report 8435011-2 (Version None)
Quarter: 2012Q2

REPORT INFORMATION
  Report Type: 
  Country: None (occurrence: None)
  Receive Date: 20120614
  Receipt Date: 20120612
  Transmission Date: 20120825
  Serious: No
  Sender: FDA-Public Use
  Company Number: US-PFIZER INC-2012141623

PATIENT
  Sex: Female

DRUGS (2)
  1. EFFEXOR XR [Suspect]
     Indication: DEPRESSION
     Dosage: 37.5 MG, DAILY
     Dates: start: 20120301
  2. EFFEXOR XR [Suspect]
     Indication: DISTURBANCE IN ATTENTION

REACTIONS (3)
  - NIGHTMARE [None]
  - MYALGIA [None]
  - MUSCLE TIGHTNESS [None]
